FAERS Safety Report 19275371 (Version 1)
Quarter: 2021Q2

REPORT INFORMATION
  Report Type: Spontaneous
  Country: IE (occurrence: IE)
  Receive Date: 20210519
  Receipt Date: 20210519
  Transmission Date: 20210717
  Serious: Yes (Hospitalization)
  Sender: FDA-Public Use
  Company Number: IE-MYLANLABS-2021M1029065

PATIENT
  Age: 45 Year
  Sex: Female

DRUGS (2)
  1. MITOMYCIN. [Concomitant]
     Active Substance: MITOMYCIN
     Indication: ANAL CANCER
     Dosage: 20 MILLIGRAM
     Route: 065
  2. FLUOROURACIL. [Suspect]
     Active Substance: FLUOROURACIL
     Indication: ANAL CANCER
     Dosage: 3000 MILLIGRAM/SQ. METER, CYCLE
     Route: 042

REACTIONS (2)
  - Pericardial effusion [Recovered/Resolved]
  - Myocarditis [Recovered/Resolved]
